FAERS Safety Report 5288140-9 (Version None)
Quarter: 2007Q2

REPORT INFORMATION
  Report Type: 
  Country: None (occurrence: None)
  Receive Date: 20070405
  Receipt Date: 20070323
  Transmission Date: 20071010
  Serious: Yes (Hospitalization)
  Sender: FDA-Public Use
  Company Number: PHBS2007CH05181

PATIENT
  Sex: Male

DRUGS (4)
  1. NITRODERM [Suspect]
     Route: 062
     Dates: end: 20070212
  2. DILZEM - SLOW RELEASE [Suspect]
     Dosage: 120 MG/DAY
     Dates: end: 20070212
  3. ATORVASTATIN CALCIUM [Concomitant]
     Dosage: 1 DOSAGE FROM/DAY
  4. ASPIRIN [Concomitant]
     Dosage: 1 DOAGE FROM/DAY

REACTIONS (11)
  - AORTIC DILATATION [None]
  - BRADYCARDIA [None]
  - CHEST PAIN [None]
  - DIASTOLIC DYSFUNCTION [None]
  - DIZZINESS [None]
  - HYPOTENSION [None]
  - MALAISE [None]
  - NAUSEA [None]
  - SUPRAVENTRICULAR EXTRASYSTOLES [None]
  - SYNCOPE [None]
  - VENTRICULAR EXTRASYSTOLES [None]
